FAERS Safety Report 16148801 (Version 2)
Quarter: 2019Q2

REPORT INFORMATION
  Report Type: Spontaneous
  Country: US (occurrence: US)
  Receive Date: 20190402
  Receipt Date: 20190524
  Transmission Date: 20190711
  Serious: Yes (Other)
  Sender: FDA-Public Use
  Company Number: US-COOPERSURGICAL, INC.-US-2019CPS000846

PATIENT
  Age: 23 Year
  Sex: Female
  Weight: 93.88 kg

DRUGS (2)
  1. PRENATAL VITAMINS                  /02014401/ [Concomitant]
     Active Substance: VITAMINS
     Indication: SUPPLEMENTATION THERAPY
     Dosage: UNK
     Route: 065
  2. PARAGARD T 380A [Suspect]
     Active Substance: COPPER
     Indication: CONTRACEPTION
     Dosage: UNK
     Route: 015
     Dates: start: 20180419, end: 20190222

REACTIONS (6)
  - Abortion spontaneous [Recovered/Resolved]
  - Pregnancy with contraceptive device [Recovered/Resolved]
  - Vaginal haemorrhage [Unknown]
  - Muscle spasms [Unknown]
  - Device expulsion [Recovered/Resolved]
  - Drug ineffective [Unknown]

NARRATIVE: CASE EVENT DATE: 2019
